FAERS Safety Report 6755368-8 (Version None)
Quarter: 2010Q2

REPORT INFORMATION
  Report Type: 
  Country: None (occurrence: None)
  Receive Date: 20100604
  Receipt Date: 20100525
  Transmission Date: 20101027
  Serious: Yes (Death, Hospitalization, Other)
  Sender: FDA-Public Use
  Company Number: US-PFIZER INC-2010066399

PATIENT
  Sex: Male
  Weight: 52.608 kg

DRUGS (7)
  1. VFEND [Suspect]
     Indication: CRYPTOCOCCOSIS
     Dosage: UNK
     Dates: start: 20100201
  2. LISINOPRIL [Concomitant]
     Dosage: UNK
  3. AMBIEN [Concomitant]
     Dosage: UNK
  4. BISOPROLOL [Concomitant]
     Dosage: UNK
  5. TAMSULOSIN [Concomitant]
     Dosage: UNK
  6. FUROSEMIDE [Concomitant]
     Dosage: UNK
  7. HYDROXYZINE [Concomitant]
     Dosage: UNK

REACTIONS (4)
  - DEATH [None]
  - LABORATORY TEST ABNORMAL [None]
  - PULMONARY OEDEMA [None]
  - RESPIRATORY DISTRESS [None]
